FAERS Safety Report 4338852-6 (Version None)
Quarter: 2004Q2

REPORT INFORMATION
  Report Type: 
  Country: None (occurrence: None)
  Receive Date: 20040409
  Receipt Date: 20040402
  Transmission Date: 20050107
  Serious: Yes (Other)
  Sender: FDA-Public Use
  Company Number: 2004-04-0035

PATIENT
  Sex: Male

DRUGS (1)
  1. INTRON A [Suspect]
     Indication: LYMPHOMA
     Dates: start: 20030901, end: 20040101

REACTIONS (1)
  - INJECTION SITE NECROSIS [None]
